FAERS Safety Report 7754646-3 (Version None)
Quarter: 2011Q3

REPORT INFORMATION
  Report Type: 
  Country: None (occurrence: None)
  Receive Date: 20110915
  Receipt Date: 20110719
  Transmission Date: 20111222
  Serious: No
  Sender: FDA-Public Use
  Company Number: US-ALLERGAN-1109737US

PATIENT
  Age: 75 Year
  Sex: Female

DRUGS (3)
  1. LUMIGAN [Suspect]
     Indication: GLAUCOMA
     Dosage: 1 GTT, QHS
     Route: 047
     Dates: start: 20110710
  2. ISTALOL [Concomitant]
     Indication: GLAUCOMA
     Dosage: UNK
     Route: 047
  3. ISTALOL [Concomitant]
     Indication: DRY EYE

REACTIONS (4)
  - EYE PAIN [None]
  - DRY EYE [None]
  - EYE IRRITATION [None]
  - VISION BLURRED [None]
